FAERS Safety Report 17352537 (Version 4)
Quarter: 2020Q4

REPORT INFORMATION
  Report Type: Spontaneous
  Country: JP (occurrence: JP)
  Receive Date: 20200131
  Receipt Date: 20201029
  Transmission Date: 20210113
  Serious: Yes (Other)
  Sender: FDA-Public Use
  Company Number: JP-ROCHE-2538007

PATIENT
  Age: 39 Year
  Sex: Male
  Weight: 58 kg

DRUGS (6)
  1. URSODEOXYCHOLIC ACID [Concomitant]
     Active Substance: URSODIOL
     Dosage: DOSAGE IS UNCERTAIN.
     Route: 048
     Dates: start: 20161223
  2. PRANLUKAST [Concomitant]
     Active Substance: PRANLUKAST
     Dosage: DOSAGE IS UNCERTAIN.
     Route: 048
     Dates: start: 20190611
  3. GENVOYA [Concomitant]
     Active Substance: COBICISTAT\ELVITEGRAVIR\EMTRICITABINE\TENOFOVIR ALAFENAMIDE FUMARATE
     Dosage: DOSAGE IS UNCERTAIN.
     Route: 048
     Dates: start: 20170107, end: 20191104
  4. HEMLIBRA [Suspect]
     Active Substance: EMICIZUMAB-KXWH
     Indication: HAEMOPHILIA A WITHOUT INHIBITORS
     Route: 058
     Dates: start: 20190319
  5. HEMLIBRA [Suspect]
     Active Substance: EMICIZUMAB-KXWH
     Route: 058
     Dates: start: 20190416
  6. BIKTARVY [Concomitant]
     Active Substance: BICTEGRAVIR SODIUM\EMTRICITABINE\TENOFOVIR ALAFENAMIDE FUMARATE
     Dosage: DOSAGE IS UNCERTAIN.
     Route: 048
     Dates: start: 20171105

REACTIONS (5)
  - Haemarthrosis [Recovering/Resolving]
  - Activated partial thromboplastin time prolonged [Unknown]
  - Axillary mass [Recovered/Resolved]
  - Folliculitis [Recovered/Resolved]
  - Therapeutic product effect decreased [Unknown]

NARRATIVE: CASE EVENT DATE: 201911
